FAERS Safety Report 7321950-2 (Version None)
Quarter: 2011Q1

REPORT INFORMATION
  Report Type: 
  Country: None (occurrence: None)
  Receive Date: 20110216
  Receipt Date: 20110204
  Transmission Date: 20110831
  Serious: Yes (Death, Hospitalization)
  Sender: FDA-Public Use
  Company Number: UTC-005116

PATIENT
  Age: 66 Year
  Sex: Female
  Weight: 56.7 kg

DRUGS (3)
  1. REVATIO [Concomitant]
  2. REMODULIN [Suspect]
     Indication: PULMONARY ARTERIAL HYPERTENSION
     Dosage: 64.8 UG/KG (0.045 UG/KG, 1 IN 1 MIN) SUBCUTANEOUS
     Route: 058
  3. DIURETICS [Concomitant]

REACTIONS (1)
  - HOSPITALISATION [None]
